FAERS Safety Report 16347322 (Version 2)
Quarter: 2019Q2

REPORT INFORMATION
  Report Type: Report from Study
  Country: CA (occurrence: CA)
  Receive Date: 20190523
  Receipt Date: 20190531
  Transmission Date: 20190711
  Serious: No
  Sender: FDA-Public Use
  Company Number: CA-ROCHE-2323842

PATIENT
  Age: 58 Year
  Sex: Female

DRUGS (4)
  1. MIRABEGRON [Concomitant]
     Active Substance: MIRABEGRON
     Dosage: ONGOING- YES
     Route: 065
  2. OXYNEO [Concomitant]
     Active Substance: OXYCODONE
     Indication: MUSCLE SPASMS
  3. OCREVUS [Suspect]
     Active Substance: OCRELIZUMAB
     Indication: PRIMARY PROGRESSIVE MULTIPLE SCLEROSIS
     Dosage: 300 MG AT DAY 0 AND 14, THEN 600 MG EVERY 6 MONTH ;ONGOING: YES
     Route: 042
     Dates: start: 20181031
  4. OXYNEO [Concomitant]
     Active Substance: OXYCODONE
     Indication: PAIN
     Dosage: ONGOING- YES
     Route: 065

REACTIONS (2)
  - Nasopharyngitis [Recovering/Resolving]
  - Night sweats [Unknown]

NARRATIVE: CASE EVENT DATE: 201905
